FAERS Safety Report 13752187 (Version 1)
Quarter: 2017Q3

REPORT INFORMATION
  Report Type: Spontaneous
  Country: US (occurrence: US)
  Receive Date: 20170713
  Receipt Date: 20170713
  Transmission Date: 20171127
  Serious: No
  Sender: FDA-Public Use
  Company Number: US-JAZZ-2017-US-005844

PATIENT
  Sex: Female

DRUGS (37)
  1. XYREM [Suspect]
     Active Substance: SODIUM OXYBATE
     Indication: NARCOLEPSY
     Dosage: 2.25G, BID
     Route: 048
     Dates: start: 201603, end: 2016
  2. BISMUTH CITRATE [Concomitant]
     Active Substance: BISMUTH CITRATE
  3. BOTOX COSMETIC [Concomitant]
     Active Substance: ONABOTULINUMTOXINA
  4. VITAMIN D                          /00107901/ [Concomitant]
     Active Substance: ERGOCALCIFEROL
  5. CLARITIN-D NOS [Concomitant]
     Active Substance: LORATADINE\PSEUDOEPHEDRINE SULFATE
  6. XIFAXAN [Concomitant]
     Active Substance: RIFAXIMIN
  7. EXCEDRIN TENSION HEADACHE [Concomitant]
     Active Substance: ACETAMINOPHEN\CAFFEINE
  8. GABAPENTIN. [Concomitant]
     Active Substance: GABAPENTIN
  9. PROVIGIL [Concomitant]
     Active Substance: MODAFINIL
  10. SEROQUEL [Concomitant]
     Active Substance: QUETIAPINE FUMARATE
  11. TREXIMET [Concomitant]
     Active Substance: NAPROXEN SODIUM\SUMATRIPTAN SUCCINATE
  12. MELOXICAM. [Concomitant]
     Active Substance: MELOXICAM
  13. NORCO [Concomitant]
     Active Substance: ACETAMINOPHEN\HYDROCODONE BITARTRATE
  14. SULFAMETHOXAZOLE AND TRIMETHOPRIM [Concomitant]
     Active Substance: SULFAMETHOXAZOLE\TRIMETHOPRIM
  15. ADDERALL [Concomitant]
     Active Substance: AMPHETAMINE ASPARTATE\AMPHETAMINE SULFATE\DEXTROAMPHETAMINE SACCHARATE\DEXTROAMPHETAMINE SULFATE
  16. OXYBUTYNIN [Concomitant]
     Active Substance: OXYBUTYNIN
  17. PILOCARPINE HCL [Concomitant]
     Active Substance: PILOCARPINE HYDROCHLORIDE
  18. RANITIDINE. [Concomitant]
     Active Substance: RANITIDINE
  19. VALTREX [Concomitant]
     Active Substance: VALACYCLOVIR HYDROCHLORIDE
  20. WELLBUTRIN [Concomitant]
     Active Substance: BUPROPION HYDROCHLORIDE
  21. LINZESS [Concomitant]
     Active Substance: LINACLOTIDE
  22. MIRALAX [Concomitant]
     Active Substance: POLYETHYLENE GLYCOL 3350
  23. TRAMADOL HCL [Concomitant]
     Active Substance: TRAMADOL HYDROCHLORIDE
  24. VENTOLIN HFA [Concomitant]
     Active Substance: ALBUTEROL SULFATE
  25. ZOFRAN [Concomitant]
     Active Substance: ONDANSETRON HYDROCHLORIDE
  26. XYREM [Suspect]
     Active Substance: SODIUM OXYBATE
     Dosage: 3.5G, BID
     Route: 048
     Dates: start: 201612
  27. PROMETHAZINE [Concomitant]
     Active Substance: PROMETHAZINE\PROMETHAZINE HYDROCHLORIDE
  28. RESTASIS [Concomitant]
     Active Substance: CYCLOSPORINE
  29. SYSTANE BALANCE [Concomitant]
     Active Substance: PROPYLENE GLYCOL
  30. CEPHALEXIN                         /00145501/ [Concomitant]
     Active Substance: CEPHALEXIN
  31. ABILIFY [Concomitant]
     Active Substance: ARIPIPRAZOLE
  32. AMBIEN [Concomitant]
     Active Substance: ZOLPIDEM TARTRATE
  33. FLUCONAZOLE. [Concomitant]
     Active Substance: FLUCONAZOLE
  34. TOPAMAX [Concomitant]
     Active Substance: TOPIRAMATE
  35. XYREM [Suspect]
     Active Substance: SODIUM OXYBATE
     Indication: CATAPLEXY
     Dosage: DOSE ADJUSTMENT
     Route: 048
     Dates: start: 201604, end: 2016
  36. DIAZEPAM. [Concomitant]
     Active Substance: DIAZEPAM
  37. FLOMAX [Concomitant]
     Active Substance: TAMSULOSIN HYDROCHLORIDE

REACTIONS (1)
  - Extra dose administered [Unknown]
